FAERS Safety Report 5858348-X (Version None)
Quarter: 2008Q3

REPORT INFORMATION
  Report Type: 
  Country: None (occurrence: None)
  Receive Date: 20080826
  Receipt Date: 20080819
  Transmission Date: 20090109
  Serious: Yes (Other)
  Sender: FDA-Public Use
  Company Number: PHHY2008JP13283

PATIENT
  Age: 81 Year
  Sex: Male

DRUGS (9)
  1. DIOVAN [Suspect]
     Indication: HYPERTENSION
     Dosage: 20 MG DAILY
     Route: 048
     Dates: start: 20070423, end: 20070921
  2. DIOVAN [Suspect]
     Dosage: 40 MG DAILY
     Route: 048
     Dates: start: 20070922, end: 20080228
  3. DIOVAN [Suspect]
     Dosage: 60 MG DAILY
     Route: 048
     Dates: start: 20080229, end: 20080612
  4. DIOVAN [Suspect]
     Dosage: 80 MG DAILY
     Route: 048
     Dates: start: 20080613
  5. DIOVAN [Suspect]
     Dosage: 60 MG DAILY
     Route: 048
     Dates: end: 20080805
  6. DISOPYRAMIDE [Concomitant]
     Route: 048
  7. MYSLEE [Concomitant]
     Route: 048
  8. EXCELASE [Concomitant]
     Route: 048
  9. MAGMITT [Concomitant]
     Route: 048

REACTIONS (3)
  - CEREBRAL INFARCTION [None]
  - DYSGEUSIA [None]
  - NERVOUS SYSTEM DISORDER [None]
